FAERS Safety Report 24218608 (Version 1)
Quarter: 2024Q3

REPORT INFORMATION
  Report Type: Spontaneous
  Country: ES (occurrence: ES)
  Receive Date: 20240816
  Receipt Date: 20240816
  Transmission Date: 20241016
  Serious: Yes (Hospitalization, Other)
  Sender: GLAXOSMITHKLINE
  Company Number: None

PATIENT

DRUGS (1)
  1. NUCALA [Suspect]
     Active Substance: MEPOLIZUMAB
     Indication: Asthma
     Dosage: 100 MG, MO
     Route: 058
     Dates: start: 202012

REACTIONS (9)
  - Gait disturbance [Recovering/Resolving]
  - Ear pain [Recovering/Resolving]
  - Hypoaesthesia [Recovering/Resolving]
  - Immune-mediated myelitis [Recovering/Resolving]
  - Behcet^s syndrome [Recovering/Resolving]
  - Pulmonary embolism [Recovering/Resolving]
  - Neurosensory hypoacusis [Recovering/Resolving]
  - Epigastric discomfort [Recovering/Resolving]
  - Headache [Recovering/Resolving]

NARRATIVE: CASE EVENT DATE: 20240101
